FAERS Safety Report 10853545 (Version 1)
Quarter: 2015Q1

REPORT INFORMATION
  Report Type: Spontaneous
  Country: IT (occurrence: IT)
  Receive Date: 20150223
  Receipt Date: 20150223
  Transmission Date: 20150721
  Serious: Yes (Hospitalization)
  Sender: FDA-Public Use
  Company Number: IT-RANBAXY-2015RR-93138

PATIENT
  Age: 32 Year
  Sex: Male

DRUGS (2)
  1. OKI [Suspect]
     Active Substance: KETOPROFEN LYSINE
     Indication: HEADACHE
     Dosage: 80 MG TOTAL
     Route: 048
     Dates: start: 20141006, end: 20141006
  2. PARACETAMOL [Suspect]
     Active Substance: ACETAMINOPHEN
     Indication: HEADACHE
     Dosage: UNK
     Route: 048
     Dates: start: 20141006, end: 20141006

REACTIONS (2)
  - Erythema [Recovered/Resolved]
  - Urticaria [Recovered/Resolved]

NARRATIVE: CASE EVENT DATE: 20141006
